FAERS Safety Report 7136099-1 (Version None)
Quarter: 2010Q4

REPORT INFORMATION
  Report Type: 
  Country: None (occurrence: None)
  Receive Date: 20101204
  Receipt Date: 20100423
  Transmission Date: 20110411
  Serious: Yes (Other)
  Sender: FDA-Public Use
  Company Number: US-BAYER-200939451NA

PATIENT
  Sex: Female
  Weight: 75 kg

DRUGS (3)
  1. YAZ [Suspect]
     Route: 048
     Dates: start: 20070101
  2. YASMIN [Suspect]
     Route: 048
  3. COUMADIN [Concomitant]
     Route: 065

REACTIONS (22)
  - BLOOD CREATININE INCREASED [None]
  - CHILLS [None]
  - CONSTIPATION [None]
  - DIZZINESS [None]
  - GASTROENTERITIS [None]
  - GENE MUTATION [None]
  - HAEMATOCHEZIA [None]
  - HEPATIC STEATOSIS [None]
  - HIATUS HERNIA [None]
  - HYPERCOAGULATION [None]
  - HYPERHIDROSIS [None]
  - INTESTINAL ISCHAEMIA [None]
  - INTESTINAL PERFORATION [None]
  - LYMPHADENOPATHY [None]
  - MALAISE [None]
  - NEPHROLITHIASIS [None]
  - PELVIC PAIN [None]
  - PROTEIN C INCREASED [None]
  - PROTEIN S INCREASED [None]
  - SINUS TACHYCARDIA [None]
  - SUPRAVENTRICULAR TACHYCARDIA [None]
  - THROMBOSIS MESENTERIC VESSEL [None]
